FAERS Safety Report 10120980 (Version 1)
Quarter: 2014Q2

REPORT INFORMATION
  Report Type: Spontaneous
  Country: BR (occurrence: BR)
  Receive Date: 20140425
  Receipt Date: 20140425
  Transmission Date: 20141212
  Serious: Yes (Other)
  Sender: FDA-Public Use
  Company Number: BR-GLAXOSMITHKLINE-A1070819A

PATIENT
  Age: 10 Year
  Sex: Male
  Weight: 29.5 kg

DRUGS (2)
  1. ZINNAT [Suspect]
     Indication: EAR INFECTION
     Route: 048
     Dates: start: 20140417, end: 20140418
  2. UNKNOWN [Suspect]
     Indication: PRURITUS
     Route: 061

REACTIONS (4)
  - Pruritus [Recovering/Resolving]
  - Skin irritation [Recovering/Resolving]
  - Asthmatic crisis [Recovered/Resolved]
  - Application site pain [Unknown]
